FAERS Safety Report 5063377-2 (Version None)
Quarter: 2006Q3

REPORT INFORMATION
  Report Type: 
  Country: None (occurrence: None)
  Receive Date: 20060724
  Receipt Date: 20060713
  Transmission Date: 20061208
  Serious: Yes (Hospitalization, Disabling, Other)
  Sender: FDA-Public Use
  Company Number: 2006-06-1730

PATIENT
  Age: 70 Year
  Sex: Male
  Weight: 56 kg

DRUGS (7)
  1. PEG-INTRON [Suspect]
     Indication: HEPATITIS C
     Dosage: SEE IMAGE
     Route: 058
     Dates: start: 20050614, end: 20050823
  2. PEG-INTRON [Suspect]
     Indication: HEPATITIS C
     Dosage: SEE IMAGE
     Route: 058
     Dates: start: 20050614, end: 20060502
  3. PEG-INTRON [Suspect]
     Indication: HEPATITIS C
     Dosage: SEE IMAGE
     Route: 058
     Dates: start: 20050830, end: 20060502
  4. REBETOL [Suspect]
     Indication: HEPATITIS C
     Dosage: 800-400 MG ORAL; 800 MG ORAL; 400 MG ORAL
     Route: 048
     Dates: start: 20050614, end: 20050901
  5. REBETOL [Suspect]
     Indication: HEPATITIS C
     Dosage: 800-400 MG ORAL; 800 MG ORAL; 400 MG ORAL
     Route: 048
     Dates: start: 20050614, end: 20060509
  6. REBETOL [Suspect]
     Indication: HEPATITIS C
     Dosage: 800-400 MG ORAL; 800 MG ORAL; 400 MG ORAL
     Route: 048
     Dates: start: 20050902, end: 20060509
  7. ADALAT [Concomitant]

REACTIONS (6)
  - DIPLOPIA [None]
  - EYE DISORDER [None]
  - HYPERTHYROIDISM [None]
  - LEUKOPLAKIA ORAL [None]
  - SQUAMOUS CELL CARCINOMA [None]
  - TONGUE NEOPLASM MALIGNANT STAGE UNSPECIFIED [None]
